FAERS Safety Report 7986081-7 (Version None)
Quarter: 2011Q4

REPORT INFORMATION
  Report Type: 
  Country: None (occurrence: None)
  Receive Date: 20111216
  Receipt Date: 20110627
  Transmission Date: 20120403
  Serious: Yes (Other)
  Sender: FDA-Public Use
  Company Number: US-BRISTOL-MYERS SQUIBB COMPANY-15845811

PATIENT
  Age: 1 Decade
  Sex: Male

DRUGS (2)
  1. ABILIFY [Suspect]
     Indication: BIPOLAR DISORDER
     Dosage: 1DF= 5 MG TO 15 MG DAILY.ALSO BD.
     Route: 048
  2. ABILIFY [Suspect]
     Indication: DEPRESSION
     Dosage: 1DF= 5 MG TO 15 MG DAILY.ALSO BD.
     Route: 048

REACTIONS (1)
  - WEIGHT INCREASED [None]
